FAERS Safety Report 10162446 (Version 1)
Quarter: 2014Q2

REPORT INFORMATION
  Report Type: Spontaneous
  Country: RU (occurrence: RU)
  Receive Date: 20140509
  Receipt Date: 20140509
  Transmission Date: 20141212
  Serious: Yes (Other)
  Sender: FDA-Public Use
  Company Number: RU-ASTRAZENECA-2014SE30352

PATIENT
  Sex: Female

DRUGS (3)
  1. ATACAND [Suspect]
     Route: 048
     Dates: start: 2012
  2. ATACAND [Suspect]
     Dosage: 10 MG OR 12 MG BY DIVIDING THE TABLET WITH A THIN RAZOR
     Route: 048
  3. ATACAND [Suspect]
     Route: 048

REACTIONS (1)
  - Blood pressure increased [Recovered/Resolved]
